FAERS Safety Report 7884200-4 (Version None)
Quarter: 2011Q4

REPORT INFORMATION
  Report Type: 
  Country: None (occurrence: None)
  Receive Date: 20111102
  Receipt Date: 20111025
  Transmission Date: 20120403
  Serious: Yes (Death)
  Sender: FDA-Public Use
  Company Number: DE-BRISTOL-MYERS SQUIBB COMPANY-16132375

PATIENT
  Age: 68 Year
  Weight: 73 kg

DRUGS (4)
  1. LEVOTHYROXINE SODIUM [Concomitant]
     Indication: HYPOTHYROIDISM
  2. CLINUTREN [Concomitant]
     Dates: start: 20110725
  3. YERVOY [Suspect]
     Indication: MALIGNANT MELANOMA
     Dosage: 3MG/KG. 25JUL AND 15AUG11
     Route: 042
     Dates: start: 20110725
  4. LEVOFLOXACIN [Concomitant]
     Dates: start: 20110712, end: 20110721

REACTIONS (2)
  - CEREBRAL HAEMORRHAGE [None]
  - BLAST CELL PROLIFERATION [None]
